FAERS Safety Report 5284345-1 (Version None)
Quarter: 2007Q1

REPORT INFORMATION
  Report Type: 
  Country: None (occurrence: None)
  Receive Date: 20070330
  Receipt Date: 20070330
  Transmission Date: 20070707
  Serious: Yes (Hospitalization)
  Sender: FDA-Public Use
  Company Number: None

PATIENT
  Sex: Male
  Weight: 75 kg

DRUGS (1)
  1. FLUOROURACIL [Suspect]
     Dosage: 3550 MG
     Dates: end: 20070110

REACTIONS (3)
  - ANAEMIA [None]
  - FAECES DISCOLOURED [None]
  - NAUSEA [None]
